FAERS Safety Report 4819576-5 (Version None)
Quarter: 2005Q4

REPORT INFORMATION
  Report Type: 
  Country: None (occurrence: None)
  Receive Date: 20051102
  Receipt Date: 20051102
  Transmission Date: 20060501
  Serious: No
  Sender: FDA-Public Use
  Company Number: None

PATIENT

DRUGS (1)
  1. GATIFLOXACIN [Suspect]
     Dosage: 400 MG QD

REACTIONS (1)
  - BLOOD GLUCOSE INCREASED [None]
